FAERS Safety Report 23886970 (Version 1)
Quarter: 2024Q2

REPORT INFORMATION
  Report Type: Spontaneous
  Country: US (occurrence: US)
  Receive Date: 20240523
  Receipt Date: 20240523
  Transmission Date: 20240716
  Serious: No
  Sender: FDA-Public Use
  Company Number: US-MankindUS-000159

PATIENT
  Sex: Female

DRUGS (1)
  1. VARENICLINE TARTRATE [Suspect]
     Active Substance: VARENICLINE TARTRATE
     Indication: Product used for unknown indication
     Dosage: STRENGTH: 0.5 MG AND 1 MG?DURATION: 2 DAYS
     Route: 048

REACTIONS (5)
  - Drug ineffective [Unknown]
  - Eye swelling [Unknown]
  - Eye pain [Unknown]
  - Swelling face [Unknown]
  - Swelling of eyelid [Unknown]
